FAERS Safety Report 17713179 (Version 2)
Quarter: 2020Q3

REPORT INFORMATION
  Report Type: Spontaneous
  Country: JP (occurrence: JP)
  Receive Date: 20200427
  Receipt Date: 20200826
  Transmission Date: 20201102
  Serious: Yes (Disabling, Other)
  Sender: FDA-Public Use
  Company Number: JP-ELI_LILLY_AND_COMPANY-JP202004009036

PATIENT
  Age: 48 Year
  Sex: Male
  Weight: 60 kg

DRUGS (35)
  1. ZYPREXA ZYDIS [Suspect]
     Active Substance: OLANZAPINE
     Dosage: 5 MG, DAILY
     Route: 048
     Dates: start: 20140513
  2. ZYPREXA [Suspect]
     Active Substance: OLANZAPINE
     Dosage: 10 MG, DAILY
     Route: 048
     Dates: start: 2015, end: 20150707
  3. ABILIFY [Suspect]
     Active Substance: ARIPIPRAZOLE
     Indication: SCHIZOPHRENIA
     Dosage: 12 MG, DAILY
     Route: 048
     Dates: start: 20111004
  4. ABILIFY [Suspect]
     Active Substance: ARIPIPRAZOLE
     Dosage: 6 MG, DAILY
     Route: 048
     Dates: start: 20120508, end: 20120707
  5. ABILIFY DISCMELT [Suspect]
     Active Substance: ARIPIPRAZOLE
     Dosage: 6 MG, BID
     Route: 048
     Dates: start: 20140205
  6. REFLEX [Concomitant]
     Active Substance: MIRTAZAPINE
     Dosage: UNK
     Route: 048
     Dates: start: 20120720
  7. LEXOTAN [Concomitant]
     Active Substance: BROMAZEPAM
     Dosage: UNK
     Route: 048
     Dates: start: 20111004
  8. SILECE [Concomitant]
     Active Substance: FLUNITRAZEPAM
     Dosage: UNK
     Route: 048
     Dates: start: 20130508
  9. ZYPREXA ZYDIS [Suspect]
     Active Substance: OLANZAPINE
     Indication: SCHIZOPHRENIA
     Dosage: 5 MG, PRN
     Route: 048
     Dates: start: 20130206
  10. ZYPREXA ZYDIS [Suspect]
     Active Substance: OLANZAPINE
     Dosage: 5 MG, PRN
     Route: 048
     Dates: start: 20130424
  11. ZYPREXA [Suspect]
     Active Substance: OLANZAPINE
     Indication: SCHIZOPHRENIA
     Dosage: 10 MG, DAILY
     Route: 048
     Dates: start: 20130424
  12. ABILIFY DISCMELT [Suspect]
     Active Substance: ARIPIPRAZOLE
     Dosage: 3 MG, BID
     Route: 048
     Dates: start: 20151130
  13. ABILIFY DISCMELT [Suspect]
     Active Substance: ARIPIPRAZOLE
     Dosage: 12 MG, BID
     Route: 048
     Dates: start: 20140704
  14. VEGETAMIN [Suspect]
     Active Substance: CHLORPROMAZINE HYDROCHLORIDE\PHENOBARBITAL\PROMETHAZINE HYDROCHLORIDE
     Indication: SCHIZOPHRENIA
     Dosage: UNK
     Dates: start: 20040624, end: 20111004
  15. REFLEX [Concomitant]
     Active Substance: MIRTAZAPINE
     Dosage: UNK
     Route: 048
     Dates: start: 20111004, end: 20120707
  16. FLUNITRAZEPAM AMEL [Concomitant]
     Active Substance: FLUNITRAZEPAM
     Dosage: UNK
     Route: 048
     Dates: start: 20140407
  17. ZYPREXA [Suspect]
     Active Substance: OLANZAPINE
     Indication: SCHIZOPHRENIA
     Dosage: 5 MG, TID
     Route: 048
     Dates: start: 20131015
  18. ZYPREXA [Suspect]
     Active Substance: OLANZAPINE
     Dosage: 5 MG, DAILY
     Route: 048
     Dates: start: 20140206
  19. ZYPREXA [Suspect]
     Active Substance: OLANZAPINE
     Dosage: 5 MG, DAILY
     Route: 048
     Dates: start: 20140611, end: 20140704
  20. ZYPREXA [Suspect]
     Active Substance: OLANZAPINE
     Dosage: 10 MG, DAILY
     Route: 048
     Dates: start: 20130517
  21. ABILIFY [Suspect]
     Active Substance: ARIPIPRAZOLE
     Dosage: 3 MG, BID
     Route: 048
     Dates: start: 20130109, end: 20130423
  22. ABILIFY DISCMELT [Suspect]
     Active Substance: ARIPIPRAZOLE
     Indication: SCHIZOPHRENIA
     Dosage: 3 MG, BID
     Route: 048
     Dates: start: 20131015
  23. AMOBAN [Concomitant]
     Active Substance: ZOPICLONE
     Dosage: UNK
     Route: 048
     Dates: start: 20111004
  24. LEVOTOMIN [LEVOMEPROMAZINE HYDROCHLORIDE] [Concomitant]
     Dosage: UNK
     Route: 048
     Dates: start: 20111004
  25. PARULEON TAIYO [Concomitant]
     Dosage: UNK
     Route: 048
     Dates: start: 20120508
  26. HALCION [Concomitant]
     Active Substance: TRIAZOLAM
     Dosage: UNK
     Route: 048
     Dates: start: 20130508
  27. ABILIFY [Suspect]
     Active Substance: ARIPIPRAZOLE
     Indication: DEPRESSION
     Dosage: 3 MG, BID
     Route: 048
     Dates: start: 20120808, end: 201210
  28. ZYPREXA [Suspect]
     Active Substance: OLANZAPINE
     Dosage: 10 MG, DAILY
     Route: 048
     Dates: start: 20140228
  29. ZYPREXA [Suspect]
     Active Substance: OLANZAPINE
     Dosage: 10 MG, DAILY
     Route: 048
     Dates: start: 20141224, end: 201502
  30. ZYPREXA [Suspect]
     Active Substance: OLANZAPINE
     Dosage: 10 MG, DAILY
     Route: 048
     Dates: start: 201502, end: 2015
  31. ABILIFY DISCMELT [Suspect]
     Active Substance: ARIPIPRAZOLE
     Dosage: 18 MG, DAILY
     Route: 048
     Dates: start: 20140611, end: 201407
  32. ABILIFY DISCMELT [Suspect]
     Active Substance: ARIPIPRAZOLE
     Dosage: 12 MG, BID
     Route: 048
     Dates: start: 20151130
  33. RITALIN [Suspect]
     Active Substance: METHYLPHENIDATE HYDROCHLORIDE
     Indication: SCHIZOPHRENIA
     Dosage: UNK
     Dates: start: 20040624, end: 20111004
  34. SULPIRIDE AMEL [Concomitant]
     Active Substance: SULPIRIDE
     Dosage: UNK
     Route: 048
     Dates: start: 20111004
  35. TOFRANIL [Concomitant]
     Active Substance: IMIPRAMINE HYDROCHLORIDE
     Dosage: UNK
     Route: 048
     Dates: start: 20111004

REACTIONS (7)
  - Obesity [Unknown]
  - Somnolence [Unknown]
  - Schizophrenia [Unknown]
  - Migraine [Unknown]
  - Fall [Unknown]
  - Memory impairment [Unknown]
  - Parkinsonism [Unknown]

NARRATIVE: CASE EVENT DATE: 2014
